FAERS Safety Report 9126046 (Version 1)
Quarter: 2013Q1

REPORT INFORMATION
  Report Type: Spontaneous
  Country: US (occurrence: US)
  Receive Date: 20130121
  Receipt Date: 20130121
  Transmission Date: 20140127
  Serious: No
  Sender: FDA-Public Use
  Company Number: US-009507513-1301USA009013

PATIENT
  Sex: 0

DRUGS (1)
  1. NUVARING [Suspect]

REACTIONS (2)
  - Muscle spasms [Unknown]
  - Vaginal haemorrhage [Unknown]
